FAERS Safety Report 20224052 (Version 1)
Quarter: 2021Q4

REPORT INFORMATION
  Report Type: Spontaneous
  Country: BR (occurrence: BR)
  Receive Date: 20211223
  Receipt Date: 20211223
  Transmission Date: 20220303
  Serious: Yes (Death, Other)
  Sender: FDA-Public Use
  Company Number: BR-CELGENE-BRA-20211206486

PATIENT
  Sex: Female

DRUGS (1)
  1. VIDAZA [Suspect]
     Active Substance: AZACITIDINE
     Indication: Myelodysplastic syndrome
     Route: 058
     Dates: start: 20210528, end: 202109

REACTIONS (3)
  - Sepsis [Fatal]
  - Drug ineffective [Unknown]
  - Transformation to acute myeloid leukaemia [Unknown]
